FAERS Safety Report 18655219 (Version 2)
Quarter: 2021Q1

REPORT INFORMATION
  Report Type: Report from Study
  Country: US (occurrence: US)
  Receive Date: 20201223
  Receipt Date: 20210106
  Transmission Date: 20210419
  Serious: Yes (Hospitalization)
  Sender: FDA-Public Use
  Company Number: NVSC2020US335624

PATIENT
  Age: 3 Year
  Sex: Male
  Weight: 15.42 kg

DRUGS (1)
  1. ILARIS [Suspect]
     Active Substance: CANAKINUMAB
     Indication: STILL^S DISEASE
     Dosage: 54 MG, EVERY 4 WEEKS
     Route: 058
     Dates: end: 202012

REACTIONS (1)
  - Still^s disease [Unknown]

NARRATIVE: CASE EVENT DATE: 20201212
